FAERS Safety Report 6055230-2 (Version None)
Quarter: 2009Q1

REPORT INFORMATION
  Report Type: 
  Country: None (occurrence: None)
  Receive Date: 20090128
  Receipt Date: 20090122
  Transmission Date: 20090719
  Serious: Yes (Other)
  Sender: FDA-Public Use
  Company Number: US-BAYER-200911521NA

PATIENT

DRUGS (1)
  1. AVELOX [Suspect]
     Indication: DRUG USE FOR UNKNOWN INDICATION
     Dates: start: 20090122

REACTIONS (4)
  - ANAPHYLACTIC REACTION [None]
  - ARRHYTHMIA [None]
  - DYSPNOEA [None]
  - URTICARIA [None]
